FAERS Safety Report 4469812-2 (Version None)
Quarter: 2004Q4

REPORT INFORMATION
  Report Type: 
  Country: None (occurrence: None)
  Receive Date: 20041008
  Receipt Date: 20040906
  Transmission Date: 20050328
  Serious: Yes (Other)
  Sender: FDA-Public Use
  Company Number: FR-GLAXOSMITHKLINE-B0344780A

PATIENT
  Age: 81 Year
  Sex: Female
  Weight: 76 kg

DRUGS (14)
  1. FORTUM [Suspect]
     Indication: URINARY TRACT INFECTION BACTERIAL
     Dosage: 1.5G PER DAY
     Route: 042
     Dates: start: 20040901, end: 20040905
  2. AMIKACIN [Concomitant]
     Indication: URINARY TRACT INFECTION
     Dosage: 1UNIT PER DAY
     Route: 058
     Dates: start: 20040901, end: 20040905
  3. BURINEX [Concomitant]
     Dosage: 1MG PER DAY
     Route: 048
  4. CORTANCYL [Concomitant]
     Dosage: 7.5MG PER DAY
     Route: 048
  5. BISOPROLOL FUMARATE [Concomitant]
     Dosage: 10MG PER DAY
     Route: 048
  6. MOPRAL [Concomitant]
     Dosage: 20MG PER DAY
     Route: 048
  7. PROZAC [Concomitant]
     Indication: DEPRESSION
     Dosage: 20MG PER DAY
     Route: 048
  8. SMECTA [Concomitant]
     Dosage: 1SAC THREE TIMES PER DAY
     Route: 048
  9. STILNOX [Concomitant]
     Indication: INSOMNIA
     Dosage: 1UNIT PER DAY
     Route: 048
  10. TARDYFERON B9 [Concomitant]
     Dosage: 2UNIT PER DAY
     Route: 048
  11. TEMESTA [Concomitant]
     Indication: ANXIETY
     Dosage: 3.75MG PER DAY
     Route: 048
  12. ZAMUDOL [Concomitant]
     Indication: PAIN
     Dosage: 150MG TWICE PER DAY
     Route: 048
  13. DI ANTALVIC [Concomitant]
     Indication: PAIN
     Dosage: 4UNIT PER DAY
     Route: 048
     Dates: start: 20040905, end: 20040910
  14. LOVENOX [Concomitant]
     Indication: PHLEBITIS
     Route: 058

REACTIONS (1)
  - MUSCLE SPASMS [None]
